FAERS Safety Report 5514152-3 (Version None)
Quarter: 2007Q4

REPORT INFORMATION
  Report Type: 
  Country: None (occurrence: None)
  Receive Date: 20071113
  Receipt Date: 20071029
  Transmission Date: 20080405
  Serious: Yes (Hospitalization)
  Sender: FDA-Public Use
  Company Number: JP-ASTRAZENECA-2007AP05899

PATIENT
  Age: 27 Year
  Sex: Male

DRUGS (8)
  1. SEROQUEL [Suspect]
     Indication: HYPOCHONDRIASIS
     Route: 048
     Dates: start: 20070501
  2. SEROQUEL [Suspect]
     Indication: SCHIZOPHRENIA
     Route: 048
     Dates: start: 20070501
  3. SEROQUEL [Suspect]
     Route: 048
     Dates: start: 20070717
  4. SEROQUEL [Suspect]
     Route: 048
     Dates: start: 20070717
  5. SEROQUEL [Suspect]
     Route: 048
     Dates: start: 20070723, end: 20070812
  6. SEROQUEL [Suspect]
     Route: 048
     Dates: start: 20070723, end: 20070812
  7. ZYPREXA [Concomitant]
     Route: 048
     Dates: start: 20060501
  8. ZYPREXA [Concomitant]
     Route: 048
     Dates: start: 20060701, end: 20070812

REACTIONS (4)
  - ANOREXIA [None]
  - GAMMA-GLUTAMYLTRANSFERASE INCREASED [None]
  - HEPATIC FUNCTION ABNORMAL [None]
  - JAUNDICE [None]
